FAERS Safety Report 8904294 (Version 1)
Quarter: 2012Q4

REPORT INFORMATION
  Report Type: 
  Country: AR (occurrence: AR)
  Receive Date: 20121113
  Receipt Date: 20121113
  Transmission Date: 20130627
  Serious: Yes (Hospitalization)
  Sender: FDA-Public Use
  Company Number: PHHY2012AR103592

PATIENT
  Sex: Female

DRUGS (1)
  1. EXFORGE D [Suspect]
     Indication: HYPERTENSION
     Dosage: 1 DF (160 mg val/ 12.5 mg HCT and unk amlo) daily

REACTIONS (4)
  - Cerebral disorder [Unknown]
  - Nasal discomfort [Unknown]
  - Feeling abnormal [Unknown]
  - Dizziness [Unknown]
